FAERS Safety Report 7372652-8 (Version None)
Quarter: 2011Q1

REPORT INFORMATION
  Report Type: 
  Country: None (occurrence: None)
  Receive Date: 20110324
  Receipt Date: 20110309
  Transmission Date: 20110831
  Serious: Yes (Hospitalization, Other)
  Sender: FDA-Public Use
  Company Number: US-BAYER-201038398NA

PATIENT
  Sex: Female
  Weight: 82.54 kg

DRUGS (8)
  1. ALEVE [Concomitant]
  2. UNCODEABLE ^UNCLASSIFIABLE^ [Concomitant]
     Indication: HEADACHE
     Dosage: UNK
     Dates: start: 20081012
  3. MEDROL [Concomitant]
     Dosage: UNK
     Dates: start: 20080926
  4. ADVIL LIQUI-GELS [Concomitant]
     Indication: ABDOMINAL PAIN
     Dosage: 800 MG, PRN
     Route: 048
     Dates: start: 20080721
  5. UNCODEABLE ^UNCLASSIFIABLE^ [Concomitant]
     Indication: PAIN
     Dosage: UNK
     Dates: start: 20080926
  6. SIMVASTATIN [Concomitant]
     Dosage: 20 MG, UNK
     Dates: start: 20081013
  7. MOTRIN [Concomitant]
     Dosage: 800 MG, UNK
     Dates: start: 20061101
  8. YASMIN [Suspect]
     Indication: PRODUCT USED FOR UNKNOWN INDICATION
     Dosage: 1 TAB/DAY
     Route: 048
     Dates: start: 20070101, end: 20080101

REACTIONS (2)
  - CEREBROVASCULAR ACCIDENT [None]
  - INTRACRANIAL VENOUS SINUS THROMBOSIS [None]
